FAERS Safety Report 6726556-1 (Version None)
Quarter: 2010Q2

REPORT INFORMATION
  Report Type: 
  Country: None (occurrence: None)
  Receive Date: 20100514
  Receipt Date: 20100302
  Transmission Date: 20101027
  Serious: Yes (Other)
  Sender: FDA-Public Use
  Company Number: US-BRISTOL-MYERS SQUIBB COMPANY-14999395

PATIENT
  Age: 52 Year
  Sex: Female

DRUGS (1)
  1. IXEMPRA KIT [Suspect]
     Dosage: 1ST DOSE=2 WEEKS AGO

REACTIONS (4)
  - DYSPEPSIA [None]
  - HEPATIC ENZYME INCREASED [None]
  - JAUNDICE [None]
  - RASH [None]
